FAERS Safety Report 8012802-3 (Version None)
Quarter: 2011Q4

REPORT INFORMATION
  Report Type: 
  Country: None (occurrence: None)
  Receive Date: 20111229
  Receipt Date: 20111222
  Transmission Date: 20120403
  Serious: Yes (Other)
  Sender: FDA-Public Use
  Company Number: JP-JNJFOC-20111208297

PATIENT
  Age: 62 Year
  Sex: Female

DRUGS (6)
  1. DOXORUBICIN HCL [Suspect]
     Route: 042
  2. DOXORUBICIN HCL [Suspect]
     Route: 042
  3. DOXORUBICIN HCL [Suspect]
     Route: 042
  4. DOXORUBICIN HCL [Suspect]
     Route: 042
  5. DOXORUBICIN HCL [Suspect]
     Indication: OVARIAN CANCER RECURRENT
     Route: 042
  6. DOXORUBICIN HCL [Suspect]
     Route: 042

REACTIONS (5)
  - STOMATITIS [None]
  - NEUTROPENIA [None]
  - PLATELET COUNT DECREASED [None]
  - INAPPROPRIATE SCHEDULE OF DRUG ADMINISTRATION [None]
  - PALMAR-PLANTAR ERYTHRODYSAESTHESIA SYNDROME [None]
